FAERS Safety Report 6327060-5 (Version None)
Quarter: 2009Q3

REPORT INFORMATION
  Report Type: 
  Country: None (occurrence: None)
  Receive Date: 20090818
  Receipt Date: 20090606
  Transmission Date: 20100115
  Serious: No
  Sender: FDA-Public Use
  Company Number: WAES 0906USA01443

PATIENT
  Age: 72 Year
  Sex: Female
  Weight: 90.2658 kg

DRUGS (3)
  1. JANUVIA [Suspect]
     Indication: DIABETES MELLITUS
     Dosage: 100 MG/DAILY/PO
     Route: 048
     Dates: start: 20090602
  2. THERA TEARS [Concomitant]
  3. TRAVATAN Z [Concomitant]

REACTIONS (4)
  - DYSPNOEA [None]
  - FEELING COLD [None]
  - GASTROINTESTINAL DISORDER [None]
  - TREMOR [None]
